FAERS Safety Report 24035110 (Version 1)
Quarter: 2024Q2

REPORT INFORMATION
  Report Type: Spontaneous
  Country: US (occurrence: None)
  Receive Date: 20240629
  Receipt Date: 20240629
  Transmission Date: 20240716
  Serious: Yes (Other)
  Sender: FDA-Public Use
  Company Number: None

PATIENT
  Age: 45 Year
  Sex: Female
  Weight: 99.9 kg

DRUGS (11)
  1. OZEMPIC [Suspect]
     Active Substance: SEMAGLUTIDE
     Indication: Type 2 diabetes mellitus
     Dosage: OTHER QUANTITY : 1 INJECTION(S);?OTHER FREQUENCY : ONCE WEEKLY;?
     Route: 058
  2. HYDROCODONE [Concomitant]
  3. Albuterol Inhaler [Concomitant]
  4. OZEMPIC [Concomitant]
  5. Flexeril [Concomitant]
  6. METOPROLOL [Concomitant]
  7. LISINOPRIL [Concomitant]
  8. LANTUS [Concomitant]
     Active Substance: INSULIN GLARGINE
  9. SOLOSTAR [Concomitant]
     Active Substance: DEVICE
  10. HUMALOG [Concomitant]
     Active Substance: INSULIN LISPRO
  11. One a Day Vitamins [Concomitant]

REACTIONS (1)
  - Tooth loss [None]

NARRATIVE: CASE EVENT DATE: 20240215
